FAERS Safety Report 21518133 (Version 6)
Quarter: 2023Q1

REPORT INFORMATION
  Report Type: Report from Study
  Country: US (occurrence: US)
  Receive Date: 20221028
  Receipt Date: 20230224
  Transmission Date: 20230417
  Serious: Yes (Hospitalization)
  Sender: FDA-Public Use
  Company Number: US-HBP-2022US027843

PATIENT

DRUGS (17)
  1. INFIGRATINIB [Suspect]
     Active Substance: INFIGRATINIB
     Indication: Cholangiocarcinoma
     Dosage: 125 MILLIGRAM, QD
     Dates: start: 20220927, end: 20221014
  2. XANAX [Concomitant]
     Active Substance: ALPRAZOLAM
     Indication: Anxiety
     Dosage: 0.25 MILLIGRAM, PRN
     Dates: start: 20220810
  3. MELATONIN [Concomitant]
     Active Substance: MELATONIN
     Indication: Sleep disorder
     Dosage: 30 MILLIGRAM, QD
     Dates: start: 202208
  4. NORVASC [Concomitant]
     Active Substance: AMLODIPINE BESYLATE
     Indication: Hypertension
     Dosage: 10 MILLIGRAM, QD
     Dates: start: 20220714
  5. CALCIUM CARBONATE\CHOLECALCIFEROL [Concomitant]
     Active Substance: CALCIUM CARBONATE\CHOLECALCIFEROL
     Indication: Supplementation therapy
     Dosage: 1250 MILLIGRAM, QD
     Dates: end: 20220920
  6. COREG [Concomitant]
     Active Substance: CARVEDILOL
     Indication: Hypertension
     Dosage: 25 MILLIGRAM, QD
     Dates: start: 20220602
  7. COREG [Concomitant]
     Active Substance: CARVEDILOL
     Indication: Hypertension
  8. ASPIRIN [Concomitant]
     Active Substance: ASPIRIN
     Indication: Supplementation therapy
     Dosage: 81 MILLIGRAM
     Dates: end: 20220919
  9. PHENERGAN [Concomitant]
     Active Substance: PROMETHAZINE HYDROCHLORIDE
     Indication: Nausea
     Dosage: 25 MILLIGRAM, Q4-Q6 H
     Dates: start: 20220810
  10. TURKEY TAIL [Concomitant]
     Indication: Supplementation therapy
     Dosage: 2 DOSAGE FORM, QD
     Dates: start: 202208
  11. BLOOD BUILDER [CYANOCOBALAMIN;FOLIC ACID;IRON] [Concomitant]
     Indication: Anaemia
     Dosage: UNK, QD
     Dates: start: 202206
  12. MINERALS\VITAMINS [Concomitant]
     Active Substance: MINERALS\VITAMINS
     Indication: Supplementation therapy
     Dosage: 1 DOSAGE FORM, QD
  13. RENVELA [Concomitant]
     Active Substance: SEVELAMER CARBONATE
     Indication: Hyperphosphataemia
     Dosage: 800 MILLIGRAM, TID
     Dates: start: 20220927
  14. ECOTRIN [Concomitant]
     Active Substance: ASPIRIN
     Indication: Supplementation therapy
     Dosage: 81 MILLIGRAM
     Dates: end: 20220919
  15. OMNICEF [Concomitant]
     Active Substance: CEFDINIR
     Dosage: 00 MILLIGRAM, BID
     Dates: start: 20220811
  16. ZOFRAN [Concomitant]
     Active Substance: ONDANSETRON HYDROCHLORIDE
     Indication: Nausea
     Dosage: 4 MILLIGRAM, Q8H
     Dates: start: 20210203
  17. TRAMADOL HYDROCHLORIDE [Concomitant]
     Active Substance: TRAMADOL HYDROCHLORIDE
     Dosage: 50 MILLIGRAM, Q8H
     Dates: start: 20150909

REACTIONS (1)
  - Dysphagia [Recovered/Resolved]

NARRATIVE: CASE EVENT DATE: 20221017
